FAERS Safety Report 7947035-X (Version None)
Quarter: 2011Q4

REPORT INFORMATION
  Report Type: 
  Country: None (occurrence: None)
  Receive Date: 20111129
  Receipt Date: 20110819
  Transmission Date: 20120403
  Serious: No
  Sender: FDA-Public Use
  Company Number: US-ASTRAZENECA-2011SE49943

PATIENT
  Age: 65 Year
  Sex: Female

DRUGS (1)
  1. VIMOVO [Suspect]
     Indication: MULTIPLE SCLEROSIS
     Route: 048

REACTIONS (3)
  - MUSCLE SPASMS [None]
  - VOMITING [None]
  - OFF LABEL USE [None]
